FAERS Safety Report 21330718 (Version 1)
Quarter: 2022Q3

REPORT INFORMATION
  Report Type: Report from Study
  Country: ES (occurrence: ES)
  Receive Date: 20220913
  Receipt Date: 20220913
  Transmission Date: 20221026
  Serious: Yes (Hospitalization)
  Sender: FDA-Public Use
  Company Number: ES-CC-90011-SCLC-001-4011013-20211130-0001SG

PATIENT
  Age: 75 Year
  Sex: Male
  Weight: 88 kg

DRUGS (8)
  1. NIVOLUMAB [Suspect]
     Active Substance: NIVOLUMAB
     Indication: Small cell lung cancer extensive stage
     Dosage: FREQUENCY TEXT: ON DAY 1?RECEIVED ONLY ONE DOSE
     Route: 042
     Dates: start: 20210927
  2. CISPLATIN [Suspect]
     Active Substance: CISPLATIN
     Indication: Small cell lung cancer extensive stage
     Dosage: RECEIVED ONLY ONE DOSE
     Route: 042
     Dates: start: 20210927
  3. ETOPOSIDE [Suspect]
     Active Substance: ETOPOSIDE
     Indication: Small cell lung cancer extensive stage
     Dosage: RECEIVED ONLY ONE DOSE?FREQUENCY TEXT: DAYS 1-3
     Route: 042
     Dates: start: 20210927
  4. BUDESONIDE [Concomitant]
     Active Substance: BUDESONIDE
     Indication: Dyspnoea
     Dosage: 200 UG X 2 X 1 DAYS
     Route: 055
     Dates: start: 20210927
  5. FILGRASTIM [Concomitant]
     Active Substance: FILGRASTIM
     Indication: Prophylaxis
     Dosage: 480 UG X 1 X 1 DAYS
     Route: 058
     Dates: start: 20211111, end: 20211115
  6. GRANISETRON [Concomitant]
     Active Substance: GRANISETRON
     Indication: Prophylaxis
     Dosage: 3 MG X 1 X 1 DAYS
     Route: 042
     Dates: start: 20211108, end: 20211110
  7. IPRATROPIUM BROMIDE [Concomitant]
     Active Substance: IPRATROPIUM BROMIDE
     Indication: Dyspnoea
     Dosage: 20 UG X 4 X 1 DAYS
     Route: 055
     Dates: start: 20210927
  8. ALBUTEROL [Concomitant]
     Active Substance: ALBUTEROL
     Indication: Dyspnoea
     Dosage: 100 UG X 3 X 1 DAYS
     Route: 055
     Dates: start: 20210927

REACTIONS (1)
  - Ataxia [Recovering/Resolving]

NARRATIVE: CASE EVENT DATE: 20211122
